FAERS Safety Report 14328796 (Version 6)
Quarter: 2018Q1

REPORT INFORMATION
  Report Type: Spontaneous
  Country: PT (occurrence: PT)
  Receive Date: 20171227
  Receipt Date: 20180322
  Transmission Date: 20180509
  Serious: Yes (Life-Threatening, Hospitalization, Other)
  Sender: FDA-Public Use
  Company Number: PT-GLAXOSMITHKLINE-PT2017GSK106290

PATIENT
  Age: 23 Year
  Sex: Female
  Weight: 102 kg

DRUGS (40)
  1. IBUPROFEN. [Suspect]
     Active Substance: IBUPROFEN
     Indication: URTICARIA CHRONIC
     Dosage: UNKNOWN DOSE
     Route: 065
  2. CETIRIZINE [Suspect]
     Active Substance: CETIRIZINE HYDROCHLORIDE
     Indication: ASTHMA
  3. ZYRTEC [Suspect]
     Active Substance: CETIRIZINE HYDROCHLORIDE
     Indication: URTICARIA CHRONIC
  4. MONTELUKAST SODIUM. [Suspect]
     Active Substance: MONTELUKAST SODIUM
     Indication: URTICARIA CHRONIC
     Dosage: UNK
     Route: 048
  5. CLEMASTINE FUMARATE. [Suspect]
     Active Substance: CLEMASTINE FUMARATE
     Indication: ASTHMA
     Dosage: UNK
     Route: 065
  6. CLEMASTINE FUMARATE. [Suspect]
     Active Substance: CLEMASTINE FUMARATE
     Indication: URTICARIA CHRONIC
  7. METHYLPREDNISOLONE. [Suspect]
     Active Substance: METHYLPREDNISOLONE
     Indication: URTICARIA CHRONIC
     Dosage: UNK
     Route: 062
  8. CETIRIZINE [Suspect]
     Active Substance: CETIRIZINE HYDROCHLORIDE
     Indication: URTICARIA CHRONIC
     Dosage: UNK
     Route: 065
  9. DESLORATADINE. [Suspect]
     Active Substance: DESLORATADINE
     Indication: URTICARIA CHRONIC
     Dosage: DPT
     Route: 048
  10. DEFLAZACORT [Suspect]
     Active Substance: DEFLAZACORT
     Indication: ASTHMA
     Dosage: UNK
     Route: 062
  11. ZYRTEC [Suspect]
     Active Substance: CETIRIZINE HYDROCHLORIDE
     Indication: ASTHMA
     Dosage: UNK
     Route: 065
  12. HYDROXYZINE [Suspect]
     Active Substance: HYDROXYZINE HYDROCHLORIDE
     Indication: URTICARIA CHRONIC
  13. CETIRIZINE [Suspect]
     Active Substance: CETIRIZINE HYDROCHLORIDE
     Indication: OFF LABEL USE
  14. PARACETAMOL [Suspect]
     Active Substance: ACETAMINOPHEN
     Indication: ASTHMA
     Dosage: UNKNOWN DOSE
     Route: 065
  15. FLURBIPROFEN. [Suspect]
     Active Substance: FLURBIPROFEN
     Indication: URTICARIA CHRONIC
     Dosage: UNKNOWN DOSE
     Route: 065
  16. FLURBIPROFEN. [Suspect]
     Active Substance: FLURBIPROFEN
     Indication: ASTHMA
  17. LORATADINE. [Suspect]
     Active Substance: LORATADINE
     Indication: URTICARIA CHRONIC
     Dosage: UNK
     Route: 065
  18. DEXAMETHASONE SODIUM PHOSPHATE. [Suspect]
     Active Substance: DEXAMETHASONE SODIUM PHOSPHATE
     Indication: ASTHMA
  19. OMALIZUMAB. [Suspect]
     Active Substance: OMALIZUMAB
     Indication: ASTHMA
     Dosage: 300MG UNK
     Route: 065
  20. HYDROCORTISONE. [Suspect]
     Active Substance: HYDROCORTISONE
     Indication: URTICARIA CHRONIC
     Dosage: UNK
     Route: 062
  21. HYDROCORTISONE. [Suspect]
     Active Substance: HYDROCORTISONE
     Indication: ASTHMA
  22. MONTELUKAST SODIUM. [Suspect]
     Active Substance: MONTELUKAST SODIUM
     Indication: ASTHMA
  23. HYDROXYZINE [Suspect]
     Active Substance: HYDROXYZINE HYDROCHLORIDE
     Indication: ASTHMA
     Dosage: UNK
     Route: 065
  24. DEXAMETHASONE SODIUM PHOSPHATE. [Suspect]
     Active Substance: DEXAMETHASONE SODIUM PHOSPHATE
     Indication: URTICARIA CHRONIC
     Dosage: INJECTION
     Route: 065
  25. OMALIZUMAB. [Suspect]
     Active Substance: OMALIZUMAB
     Indication: ANGIOEDEMA
     Dosage: 150 MG UNK
     Route: 065
  26. ZYRTEC [Suspect]
     Active Substance: CETIRIZINE HYDROCHLORIDE
     Indication: OFF LABEL USE
  27. DEFLAZACORT [Suspect]
     Active Substance: DEFLAZACORT
     Indication: URTICARIA CHRONIC
  28. IBUPROFEN. [Suspect]
     Active Substance: IBUPROFEN
     Indication: ASTHMA
  29. DESLORATADINE. [Suspect]
     Active Substance: DESLORATADINE
     Indication: ASTHMA
     Dosage: UNK
     Route: 065
  30. DESLORATADINE. [Suspect]
     Active Substance: DESLORATADINE
     Indication: DRUG PROVOCATION TEST
  31. PARACETAMOL [Suspect]
     Active Substance: ACETAMINOPHEN
     Indication: URTICARIA CHRONIC
  32. CLARITINE [Suspect]
     Active Substance: LORATADINE
     Indication: URTICARIA CHRONIC
     Dosage: UNK
     Route: 065
  33. EBASTINE [Suspect]
     Active Substance: EBASTINE
     Indication: URTICARIA CHRONIC
     Dosage: UNK
     Route: 065
  34. OMALIZUMAB. [Suspect]
     Active Substance: OMALIZUMAB
     Indication: URTICARIA CHRONIC
  35. DEFLAZACORT [Suspect]
     Active Substance: DEFLAZACORT
     Indication: URTICARIA CHRONIC
  36. LORATADINE. [Suspect]
     Active Substance: LORATADINE
     Indication: ASTHMA
  37. CLARITINE [Suspect]
     Active Substance: LORATADINE
     Indication: ASTHMA
     Dosage: UNK
     Route: 065
  38. METHYLPREDNISOLONE. [Suspect]
     Active Substance: METHYLPREDNISOLONE
     Indication: ASTHMA
  39. EBASTINE [Suspect]
     Active Substance: EBASTINE
     Indication: ASTHMA
  40. DEFLAZACORT [Suspect]
     Active Substance: DEFLAZACORT
     Indication: ASTHMA
     Dosage: UNK
     Route: 048

REACTIONS (8)
  - Urticaria [Recovering/Resolving]
  - Maternal exposure before pregnancy [Unknown]
  - Exposure during pregnancy [Unknown]
  - Angioedema [Recovered/Resolved]
  - Drug reaction with eosinophilia and systemic symptoms [Recovered/Resolved]
  - Allergy test positive [Recovering/Resolving]
  - Syncope [Unknown]
  - Product use in unapproved indication [Unknown]
